FAERS Safety Report 8024965-4 (Version None)
Quarter: 2012Q1

REPORT INFORMATION
  Report Type: 
  Country: None (occurrence: None)
  Receive Date: 20120105
  Receipt Date: 20120103
  Transmission Date: 20120608
  Serious: Yes (Other)
  Sender: FDA-Public Use
  Company Number: PHHY2011ES100716

PATIENT
  Age: 82 Year
  Sex: Male

DRUGS (1)
  1. SULFADIAZINE [Suspect]
     Indication: EYE INFECTION TOXOPLASMAL

REACTIONS (8)
  - URINARY TRACT INFECTION BACTERIAL [None]
  - ABDOMINAL PAIN LOWER [None]
  - DYSURIA [None]
  - RECTAL TENESMUS [None]
  - PROTEINURIA [None]
  - POLYURIA [None]
  - RENAL FAILURE ACUTE [None]
  - HAEMATURIA [None]
